FAERS Safety Report 22973954 (Version 2)
Quarter: 2024Q2

REPORT INFORMATION
  Report Type: Report from Study
  Country: US (occurrence: US)
  Receive Date: 20230922
  Receipt Date: 20240425
  Transmission Date: 20240715
  Serious: No
  Sender: FDA-Public Use
  Company Number: US-002147023-NVSC2023US202800

PATIENT
  Sex: Male
  Weight: 77 kg

DRUGS (1)
  1. COSENTYX [Suspect]
     Active Substance: SECUKINUMAB
     Indication: Product used for unknown indication
     Dosage: 300 MG, QMO
     Route: 058
     Dates: start: 20220901

REACTIONS (2)
  - Psoriasis [Unknown]
  - Rash [Unknown]
